FAERS Safety Report 9009795 (Version 4)
Quarter: 2016Q3

REPORT INFORMATION
  Report Type: Spontaneous
  Country: US (occurrence: US)
  Receive Date: 20130110
  Receipt Date: 20160825
  Transmission Date: 20161109
  Serious: Yes (Hospitalization, Other)
  Sender: FDA-Public Use
  Company Number: US-009507513-1301USA002300

PATIENT
  Sex: Female
  Weight: 58.95 kg

DRUGS (2)
  1. FOSAMAX [Suspect]
     Active Substance: ALENDRONATE SODIUM
     Dosage: 10 MG, UNK
     Route: 048
  2. FOSAMAX [Suspect]
     Active Substance: ALENDRONATE SODIUM
     Indication: OSTEOPENIA
     Dosage: 70 MG, UNK
     Route: 048
     Dates: start: 1997, end: 200709

REACTIONS (24)
  - Intervertebral disc degeneration [Unknown]
  - Appendicectomy [Unknown]
  - Hypertension [Unknown]
  - Hyperlipidaemia [Unknown]
  - Hiatus hernia [Unknown]
  - Facial paresis [Unknown]
  - Cervical radiculopathy [Unknown]
  - Procedural hypotension [Unknown]
  - Herpes virus infection [Unknown]
  - Meningioma [Unknown]
  - Osteoarthritis [Unknown]
  - Myocardial infarction [Unknown]
  - Coronary artery disease [Unknown]
  - Deep vein thrombosis [Unknown]
  - Tooth extraction [Unknown]
  - Pain in extremity [Unknown]
  - Benign breast neoplasm [Unknown]
  - Angina pectoris [Unknown]
  - Femur fracture [Recovered/Resolved]
  - Upper limb fracture [Not Recovered/Not Resolved]
  - Fall [Unknown]
  - Synovial cyst [Unknown]
  - Deafness unilateral [Unknown]
  - Cholecystectomy [Unknown]

NARRATIVE: CASE EVENT DATE: 199809
